FAERS Safety Report 20033085 (Version 1)
Quarter: 2021Q4

REPORT INFORMATION
  Report Type: Spontaneous
  Country: FR (occurrence: FR)
  Receive Date: 20211104
  Receipt Date: 20211104
  Transmission Date: 20220303
  Serious: Yes (Life-Threatening, Other)
  Sender: FDA-Public Use
  Company Number: FR-AMGEN-FRASP2021172007

PATIENT

DRUGS (13)
  1. FILGRASTIM [Suspect]
     Active Substance: FILGRASTIM
     Indication: Prophylaxis
     Dosage: 5 MICROGRAM/KILOGRAM, QD FROM DAY 03 TO DAY 10 FOR EACH CYCLE
     Route: 058
     Dates: start: 2005
  2. FLUOROURACIL [Concomitant]
     Active Substance: FLUOROURACIL
     Indication: Breast cancer
     Dosage: 500 MILLIGRAM/SQ. METER, CYCLICAL (THREE CYCLES)
     Route: 042
     Dates: start: 2005
  3. FLUOROURACIL [Concomitant]
     Active Substance: FLUOROURACIL
     Dosage: 500 MILLIGRAM/SQ. METER, CYCLICAL
     Route: 042
     Dates: start: 2005
  4. FLUOROURACIL [Concomitant]
     Active Substance: FLUOROURACIL
     Dosage: UNK
     Route: 042
     Dates: start: 2005
  5. EPIRUBICIN [Concomitant]
     Active Substance: EPIRUBICIN
     Indication: Breast cancer
     Dosage: 100 MILLIGRAM/SQ. METER, CYCLICAL (THREE CYCLES)
     Route: 042
     Dates: start: 2005
  6. EPIRUBICIN [Concomitant]
     Active Substance: EPIRUBICIN
     Dosage: 100 MILLIGRAM/SQ. METER, CYCLICAL
     Route: 042
     Dates: start: 2005
  7. EPIRUBICIN [Concomitant]
     Active Substance: EPIRUBICIN
     Dosage: UNK
     Route: 042
     Dates: start: 2005
  8. CYCLOPHOSPHAMIDE [Concomitant]
     Active Substance: CYCLOPHOSPHAMIDE
     Indication: Breast cancer
     Dosage: 500 MILLIGRAM/SQ. METER, CYCLICAL (THREE CYCLES)
     Route: 042
     Dates: start: 2005
  9. CYCLOPHOSPHAMIDE [Concomitant]
     Active Substance: CYCLOPHOSPHAMIDE
     Dosage: 500 MILLIGRAM/SQ. METER, CYCLICAL
     Route: 042
     Dates: start: 2005
  10. CYCLOPHOSPHAMIDE [Concomitant]
     Active Substance: CYCLOPHOSPHAMIDE
     Dosage: UNK
     Route: 042
     Dates: start: 2005
  11. DOCETAXEL [Concomitant]
     Active Substance: DOCETAXEL
     Indication: Breast cancer
     Dosage: 100 MILLIGRAM/SQ. METER, CYCLICAL (THREE CYCLES) ONE HOUR INFUSION AT TWICE WEEKLY
     Route: 042
     Dates: start: 2005
  12. DOCETAXEL [Concomitant]
     Active Substance: DOCETAXEL
     Dosage: 100 MILLIGRAM/SQ. METER, CYCLICAL
     Route: 042
     Dates: start: 2005
  13. DOCETAXEL [Concomitant]
     Active Substance: DOCETAXEL
     Dosage: UNK
     Route: 042
     Dates: start: 2005

REACTIONS (8)
  - Neutropenia [Unknown]
  - Febrile neutropenia [Unknown]
  - Thrombocytopenia [Unknown]
  - Musculoskeletal pain [Unknown]
  - Skin toxicity [Unknown]
  - Nail toxicity [Unknown]
  - Mucosal inflammation [Unknown]
  - Oedema [Unknown]

NARRATIVE: CASE EVENT DATE: 20050101
